FAERS Safety Report 7784045-X (Version None)
Quarter: 2011Q3

REPORT INFORMATION
  Report Type: 
  Country: None (occurrence: None)
  Receive Date: 20110926
  Receipt Date: 20110913
  Transmission Date: 20111222
  Serious: No
  Sender: FDA-Public Use
  Company Number: 1000020166

PATIENT
  Age: 34 Year
  Sex: Female
  Weight: 83.3 kg

DRUGS (2)
  1. FOSFOMYCIN (FOSFOMYCIN TROMETAMOL) (3000 MILLIGRAM, GRANULATE) [Suspect]
     Indication: URINARY TRACT INFECTION
     Dosage: (3 GM, ONCE), ORAL
     Route: 048
     Dates: start: 20110106, end: 20110106
  2. CORTISON (CORTISONE ACETATE) (CORTISONE ACETATE) [Concomitant]

REACTIONS (3)
  - PRURITUS GENERALISED [None]
  - DERMATITIS ALLERGIC [None]
  - MATERNAL EXPOSURE BEFORE PREGNANCY [None]
